FAERS Safety Report 11089000 (Version 1)
Quarter: 2015Q2

REPORT INFORMATION
  Report Type: Spontaneous
  Country: BE (occurrence: BE)
  Receive Date: 20150504
  Receipt Date: 20150504
  Transmission Date: 20150821
  Serious: Yes (Other)
  Sender: FDA-Public Use
  Company Number: BE-ABBVIE-15K-013-1382720-00

PATIENT
  Age: 60 Year
  Sex: Male
  Weight: 120 kg

DRUGS (2)
  1. HUMIRA [Suspect]
     Active Substance: ADALIMUMAB
     Route: 058
     Dates: start: 201410, end: 20150227
  2. HUMIRA [Suspect]
     Active Substance: ADALIMUMAB
     Indication: RHEUMATOID ARTHRITIS
     Route: 058
     Dates: start: 201406, end: 201410

REACTIONS (10)
  - Peripheral sensory neuropathy [Recovered/Resolved]
  - Blood cholesterol increased [Unknown]
  - Non-high-density lipoprotein cholesterol increased [Unknown]
  - Blood glucose increased [Unknown]
  - Aspartate aminotransferase increased [Unknown]
  - Blood 25-hydroxycholecalciferol decreased [Unknown]
  - Gamma-glutamyltransferase increased [Unknown]
  - Monocyte count increased [Unknown]
  - Low density lipoprotein increased [Unknown]
  - Serum ferritin increased [Unknown]

NARRATIVE: CASE EVENT DATE: 201407
